FAERS Safety Report 4972199-X (Version None)
Quarter: 2006Q2

REPORT INFORMATION
  Report Type: 
  Country: None (occurrence: None)
  Receive Date: 20060413
  Receipt Date: 20060320
  Transmission Date: 20061013
  Serious: Yes (Hospitalization)
  Sender: FDA-Public Use
  Company Number: ES-GLAXOSMITHKLINE-B0416998A

PATIENT
  Age: 51 Year
  Sex: Female

DRUGS (3)
  1. LAMICTAL [Suspect]
     Indication: DEPRESSION
     Route: 048
     Dates: start: 20060223, end: 20060320
  2. ANAFRANIL [Suspect]
     Indication: DEPRESSION
     Dosage: 75MG PER DAY
     Route: 048
     Dates: start: 20060203, end: 20060321
  3. SINOGAN [Suspect]
     Indication: INSOMNIA
     Dosage: 25MG PER DAY
     Route: 048
     Dates: start: 20060302, end: 20060321

REACTIONS (9)
  - ERYTHEMA INFECTIOSUM [None]
  - PRURITUS [None]
  - PYREXIA [None]
  - RASH [None]
  - RASH ERYTHEMATOUS [None]
  - RASH MACULO-PAPULAR [None]
  - SKIN REACTION [None]
  - TOXIC SKIN ERUPTION [None]
  - URTICARIA [None]
